FAERS Safety Report 15121925 (Version 2)
Quarter: 2018Q3

REPORT INFORMATION
  Report Type: Spontaneous
  Country: FR (occurrence: FR)
  Receive Date: 20180709
  Receipt Date: 20180820
  Transmission Date: 20181010
  Serious: Yes (Hospitalization, Other)
  Sender: FDA-Public Use
  Company Number: FR-PFIZER INC-2018267697

PATIENT
  Age: 84 Year
  Sex: Female
  Weight: 53 kg

DRUGS (10)
  1. IBRANCE [Suspect]
     Active Substance: PALBOCICLIB
     Indication: BREAST CANCER
     Dosage: 1 DF, 1X/DAY, (3 WEEKS/4)
     Route: 048
     Dates: start: 20180509
  2. FASLODEX [Suspect]
     Active Substance: FULVESTRANT
     Indication: BREAST CANCER
     Dosage: 1 INJECTION AT D1, D15, D28
     Route: 030
     Dates: start: 20180509
  3. DIGOXINE NATIVELLE [Suspect]
     Active Substance: DIGOXIN
     Indication: ATRIAL FIBRILLATION
     Dosage: 0.25 MG, 1X/DAY
     Route: 048
     Dates: start: 20130527, end: 20180529
  4. INNOHEP [Suspect]
     Active Substance: TINZAPARIN SODIUM
     Indication: ATRIAL FIBRILLATION
     Dosage: 0.5 ML, 1X/DAY
     Route: 058
     Dates: start: 20180116, end: 20180529
  5. LESCOL [Suspect]
     Active Substance: FLUVASTATIN SODIUM
     Dosage: 80 MG, 1X/DAY, IN THE EVENING
     Route: 048
     Dates: end: 20180529
  6. LASILIX /00032601/ [Suspect]
     Active Substance: FUROSEMIDE
     Dosage: 20 MG, 1X/DAY, IN THE MORNING
     Route: 048
     Dates: end: 20180529
  7. UVEDOSE [Concomitant]
     Active Substance: CHOLECALCIFEROL
     Dosage: UNK
  8. STAGID [Suspect]
     Active Substance: METFORMIN PAMOATE
     Indication: TYPE 2 DIABETES MELLITUS
     Dosage: 1 DF, 1X/DAY, IN THE EVENING
     Route: 048
     Dates: start: 2016, end: 20180529
  9. ATACAND [Suspect]
     Active Substance: CANDESARTAN CILEXETIL
     Dosage: 32 MG, 1X/DAY, AT THE NOON
     Route: 048
     Dates: start: 20150910, end: 20180529
  10. SECTRAL [Concomitant]
     Active Substance: ACEBUTOLOL HYDROCHLORIDE
     Dosage: UNK

REACTIONS (1)
  - Acute kidney injury [Recovered/Resolved]

NARRATIVE: CASE EVENT DATE: 20180228
